FAERS Safety Report 7435166-2 (Version None)
Quarter: 2011Q2

REPORT INFORMATION
  Report Type: 
  Country: None (occurrence: None)
  Receive Date: 20110425
  Receipt Date: 20110420
  Transmission Date: 20111010
  Serious: Yes (Death)
  Sender: FDA-Public Use
  Company Number: PHHY2011AR33735

PATIENT
  Sex: Female

DRUGS (1)
  1. EXELON [Suspect]
     Dosage: PATCH 5
     Route: 062

REACTIONS (2)
  - CEREBROVASCULAR ACCIDENT [None]
  - CEREBRAL HAEMORRHAGE [None]
